FAERS Safety Report 12921673 (Version 3)
Quarter: 2016Q4

REPORT INFORMATION
  Report Type: Report from Study
  Country: US (occurrence: US)
  Receive Date: 20161108
  Receipt Date: 20161116
  Transmission Date: 20170207
  Serious: Yes (Death)
  Sender: FDA-Public Use
  Company Number: US-UNITED THERAPEUTICS-UNT-2016-016983

PATIENT
  Age: 41 Year
  Sex: Male
  Weight: 87.98 kg

DRUGS (13)
  1. INTELENCE [Concomitant]
     Active Substance: ETRAVIRINE
     Indication: HIV INFECTION
     Dosage: 400 MG, TOTAL DAILY DOSE
     Route: 048
  2. NORVIR [Concomitant]
     Active Substance: RITONAVIR
     Indication: HIV INFECTION
     Dosage: 200 MG, TOTAL DAILY DOSE
     Route: 048
  3. LASIX [Concomitant]
     Active Substance: FUROSEMIDE
     Indication: OEDEMA PERIPHERAL
     Dosage: 40 MG, TOTAL DAILY DOSE
     Route: 048
  4. PREZISTA [Concomitant]
     Active Substance: DARUNAVIR ETHANOLATE
     Indication: HIV INFECTION
     Dosage: 1200 MG, TOTAL DAILY DOSE
     Route: 048
  5. LIPITOR [Concomitant]
     Active Substance: ATORVASTATIN CALCIUM
     Indication: HYPERLIPIDAEMIA
     Dosage: 200 MG, TOTAL DAILY DOSE
     Route: 048
  6. BLINDED BERAPROST SODIUM [Suspect]
     Active Substance: BERAPROST SODIUM
     Indication: PULMONARY ARTERIAL HYPERTENSION
     Route: 048
  7. BLINDED PLACEBO [Suspect]
     Active Substance: INVESTIGATIONAL PRODUCT
     Indication: PULMONARY ARTERIAL HYPERTENSION
     Route: 048
  8. NEURONTIN [Concomitant]
     Active Substance: GABAPENTIN
     Indication: HIV INFECTION
     Dosage: 300 MG, TOTAL DAILY DOSE
     Route: 048
  9. TYVASO [Suspect]
     Active Substance: TREPROSTINIL
     Indication: PULMONARY ARTERIAL HYPERTENSION
     Dosage: 36 ?G, QID
     Dates: start: 20161005
  10. PRINIVIL [Concomitant]
     Active Substance: LISINOPRIL
     Indication: HYPERTENSION
     Dosage: 5 MG, TOTAL DAILY DOSE
     Route: 048
  11. TIVICAY [Concomitant]
     Active Substance: DOLUTEGRAVIR SODIUM
     Indication: HIV INFECTION
     Dosage: 100 MG, TOTAL DAILY DOSE
     Route: 048
  12. MEPRON                             /01181501/ [Concomitant]
     Active Substance: ATOVAQUONE
     Indication: HIV INFECTION
     Dosage: 750 MG/ 5 ML, TOTAL DAILY DOSE
     Route: 048
  13. MICROZIDE                          /00022001/ [Concomitant]
     Indication: HYPERTENSION
     Dosage: 25 MG, TOTAL DAILY DOSE
     Route: 048

REACTIONS (1)
  - Death [Fatal]

NARRATIVE: CASE EVENT DATE: 20161028
